FAERS Safety Report 4743595-0 (Version None)
Quarter: 2005Q3

REPORT INFORMATION
  Report Type: 
  Country: None (occurrence: None)
  Receive Date: 20050809
  Receipt Date: 20050729
  Transmission Date: 20060218
  Serious: No
  Sender: FDA-Public Use
  Company Number: 2005FR-00162

PATIENT
  Age: 27 Year
  Sex: Male

DRUGS (4)
  1. IBUPROFEN [Suspect]
  2. CODEINE [Suspect]
  3. PAROXETINE [Concomitant]
  4. ETHANOL [Concomitant]

REACTIONS (8)
  - AGGRESSION [None]
  - ALCOHOL USE [None]
  - DRUG ABUSER [None]
  - INTENTIONAL MISUSE [None]
  - MULTIPLE DRUG OVERDOSE [None]
  - SEXUAL DYSFUNCTION [None]
  - SOCIAL PHOBIA [None]
  - SUICIDAL IDEATION [None]
